FAERS Safety Report 6740121-1 (Version None)
Quarter: 2010Q2

REPORT INFORMATION
  Report Type: 
  Country: None (occurrence: None)
  Receive Date: 20100525
  Receipt Date: 20100517
  Transmission Date: 20101027
  Serious: Yes (Hospitalization)
  Sender: FDA-Public Use
  Company Number: GR-AMGEN-KDL412553

PATIENT
  Age: 90 Year
  Sex: Male

DRUGS (3)
  1. ARANESP [Suspect]
     Indication: RENAL FAILURE CHRONIC
     Route: 058
  2. CANDESARTAN [Concomitant]
  3. CLOPIDOGREL [Concomitant]

REACTIONS (4)
  - DERMATITIS [None]
  - RASH PRURITIC [None]
  - SKIN EXFOLIATION [None]
  - SKIN LESION [None]
